FAERS Safety Report 12233607 (Version 1)
Quarter: 2016Q2

REPORT INFORMATION
  Report Type: Spontaneous
  Country: US (occurrence: US)
  Receive Date: 20160404
  Receipt Date: 20160404
  Transmission Date: 20160815
  Serious: No
  Sender: FDA-Public Use
  Company Number: US-BAYER-2016-058055

PATIENT
  Sex: Female
  Weight: 68.2 kg

DRUGS (3)
  1. ALBUTEROL. [Concomitant]
     Active Substance: ALBUTEROL
  2. MIRALAX [Suspect]
     Active Substance: POLYETHYLENE GLYCOL 3350
     Indication: CONSTIPATION
     Dosage: 1 DF, PRN
     Route: 048
  3. NASONEX [Concomitant]
     Active Substance: MOMETASONE FUROATE

REACTIONS (8)
  - Rash [None]
  - Rash generalised [None]
  - Malaise [None]
  - Scar [None]
  - Vomiting [None]
  - Skin lesion [None]
  - Nausea [None]
  - Product use issue [None]
